FAERS Safety Report 16888770 (Version 1)
Quarter: 2019Q4

REPORT INFORMATION
  Report Type: Spontaneous
  Country: US (occurrence: US)
  Receive Date: 20191007
  Receipt Date: 20191007
  Transmission Date: 20200122
  Serious: Yes (Other)
  Sender: FDA-Public Use
  Company Number: US-LUPIN PHARMACEUTICALS INC.-2019-06350

PATIENT
  Age: 14 Year
  Sex: Male

DRUGS (1)
  1. BUDESONIDE. [Suspect]
     Active Substance: BUDESONIDE
     Indication: CROHN^S DISEASE
     Dosage: 6 MILLIGRAM, QD
     Route: 048

REACTIONS (4)
  - Abnormal weight gain [Unknown]
  - Cushingoid [Unknown]
  - Cushing^s syndrome [Unknown]
  - Fat tissue increased [Unknown]
